FAERS Safety Report 7107776-3 (Version None)
Quarter: 2010Q4

REPORT INFORMATION
  Report Type: 
  Country: None (occurrence: None)
  Receive Date: 20101117
  Receipt Date: 20101104
  Transmission Date: 20110411
  Serious: Yes (Other)
  Sender: FDA-Public Use
  Company Number: PHHY2010FR71752

PATIENT
  Sex: Male
  Weight: 69 kg

DRUGS (6)
  1. ACLASTA [Suspect]
     Indication: OSTEOPOROSIS
     Dosage: UNK
     Dates: start: 20101019
  2. GARDENAL [Concomitant]
     Indication: PETIT MAL EPILEPSY
     Dosage: 50 1 DF IN THE EVENING
     Dates: start: 20070709
  3. TOPIRAMATE [Concomitant]
     Indication: PETIT MAL EPILEPSY
     Dosage: 100 1 DF IN THE MORNING AND 1 DF IN THE EVENING
     Dates: start: 19980617
  4. URBANYL [Concomitant]
     Indication: PETIT MAL EPILEPSY
     Dosage: 1 DF IN THE MORNING AND 1 DF IN THE EVENING
  5. VIMPAT [Concomitant]
     Indication: PETIT MAL EPILEPSY
     Dosage: 1 DF IN MORNING AND EVENING
     Dates: start: 20090511
  6. FLECAINIDE ACETATE [Concomitant]
     Indication: ATRIAL FIBRILLATION
     Dosage: 100 UNK, QD
     Dates: start: 20060523

REACTIONS (1)
  - CONVULSION [None]
